FAERS Safety Report 8611796-7 (Version None)
Quarter: 2012Q3

REPORT INFORMATION
  Report Type: 
  Country: None (occurrence: None)
  Receive Date: 20120822
  Receipt Date: 20120817
  Transmission Date: 20120928
  Serious: Yes (Hospitalization)
  Sender: FDA-Public Use
  Company Number: RS-ROCHE-1104545

PATIENT
  Sex: Male
  Weight: 62 kg

DRUGS (4)
  1. ROFERON-A [Suspect]
     Indication: RENAL CELL CARCINOMA
     Route: 058
     Dates: start: 20091217, end: 20101103
  2. ENALAPRIL MALEATE [Concomitant]
     Dates: start: 20100623, end: 20101110
  3. AVASTIN [Suspect]
     Indication: RENAL CELL CARCINOMA
     Route: 042
     Dates: start: 20091210, end: 20101027
  4. IRON [Concomitant]
     Indication: BLOOD IRON DECREASED
     Route: 048
     Dates: start: 20100609, end: 20101110

REACTIONS (1)
  - DEPRESSION [None]
